FAERS Safety Report 13335224 (Version 1)
Quarter: 2017Q1

REPORT INFORMATION
  Report Type: Spontaneous
  Country: US (occurrence: US)
  Receive Date: 20170314
  Receipt Date: 20170314
  Transmission Date: 20170428
  Serious: No
  Sender: FDA-Public Use
  Company Number: US-GALDERMA-US16005978

PATIENT
  Age: 57 Year
  Sex: Female

DRUGS (9)
  1. AMBIEN (ZOLPIDEM) [Concomitant]
  2. KLONOPIN [Concomitant]
     Active Substance: CLONAZEPAM
     Indication: ANXIETY
  3. AMERGE (NARATRIPTAN) [Concomitant]
     Indication: MIGRAINE
  4. FORTEO (TERIPARATIDE) INJECTION [Concomitant]
     Indication: SPINAL FRACTURE
  5. KLONOPIN [Concomitant]
     Active Substance: CLONAZEPAM
     Indication: STRESS
  6. TRI-LUMA [Suspect]
     Active Substance: FLUOCINOLONE ACETONIDE\HYDROQUINONE\TRETINOIN
     Indication: CHLOASMA
     Route: 061
     Dates: start: 201608, end: 201608
  7. FORTEO (TERIPARATIDE) INJECTION [Concomitant]
     Indication: OSTEOPOROSIS
  8. UNKNOWN SUNSCREEN [Concomitant]
  9. UNKNOWN CREAMY CLEANSER FACE WASH [Concomitant]

REACTIONS (1)
  - Incorrect product storage [Recovered/Resolved]
